FAERS Safety Report 17754365 (Version 6)
Quarter: 2023Q1

REPORT INFORMATION
  Report Type: Spontaneous
  Country: CA (occurrence: CA)
  Receive Date: 20200507
  Receipt Date: 20230111
  Transmission Date: 20230417
  Serious: Yes (Life-Threatening, Hospitalization, Other)
  Sender: FDA-Public Use
  Company Number: ALC2020CA003391

PATIENT
  Age: 51 Year
  Sex: Male

DRUGS (34)
  1. ATROPINE SULFATE [Suspect]
     Active Substance: ATROPINE SULFATE
     Indication: Product used for unknown indication
     Dosage: UNK
     Route: 065
  2. ATROPINE SULFATE [Suspect]
     Active Substance: ATROPINE SULFATE
     Indication: Overdose
     Dosage: UNK
     Route: 065
  3. ACTIVATED CHARCOAL [Suspect]
     Active Substance: ACTIVATED CHARCOAL
     Indication: Overdose
     Route: 065
  4. VERAPAMIL HYDROCHLORIDE [Suspect]
     Active Substance: VERAPAMIL HYDROCHLORIDE
     Indication: Product used for unknown indication
     Dosage: 19.2 G
     Route: 048
  5. CALCIUM CARBONATE [Suspect]
     Active Substance: CALCIUM CARBONATE
     Indication: Overdose
     Route: 065
  6. DEXTROSE\SODIUM CHLORIDE [Suspect]
     Active Substance: DEXTROSE\SODIUM CHLORIDE
     Indication: Overdose
     Route: 065
  7. DEXTROSE\SODIUM CHLORIDE [Suspect]
     Active Substance: DEXTROSE\SODIUM CHLORIDE
     Route: 065
  8. DIPHENHYDRAMINE [Suspect]
     Active Substance: DIPHENHYDRAMINE
     Indication: Overdose
     Dosage: 200.0 MG
     Route: 048
  9. GLUCAGON [Suspect]
     Active Substance: GLUCAGON
     Indication: Overdose
     Dosage: 5.0 MG
     Route: 065
  10. GLUTAMIC ACID [Suspect]
     Active Substance: GLUTAMIC ACID
     Indication: Overdose
     Dosage: UNK
     Route: 042
  11. GLUTAMIC ACID [Suspect]
     Active Substance: GLUTAMIC ACID
     Dosage: TABLET
     Route: 065
  12. GLYCINE [Suspect]
     Active Substance: GLYCINE
     Indication: Overdose
     Dosage: UNK
     Route: 065
  13. HISTIDINE [Suspect]
     Active Substance: HISTIDINE
     Indication: Overdose
     Route: 065
  14. INSULIN NOS [Suspect]
     Active Substance: INSULIN NOS
     Indication: Overdose
     Dosage: 60.0 IU ORAL GLOBULES
     Route: 065
  15. ASPARTIC ACID [Suspect]
     Active Substance: ASPARTIC ACID
     Indication: Overdose
     Dosage: UNK
     Route: 065
  16. LYSINE [Suspect]
     Active Substance: LYSINE
     Indication: Overdose
     Dosage: UNK
     Route: 065
  17. MAGNESIUM CHLORIDE [Suspect]
     Active Substance: MAGNESIUM CHLORIDE
     Indication: Overdose
     Route: 065
  18. METHYLENE BLUE [Suspect]
     Active Substance: METHYLENE BLUE
     Indication: Overdose
     Dosage: 80.0 MG
     Route: 065
  19. NOREPINEPHRINE [Suspect]
     Active Substance: NOREPINEPHRINE
     Indication: Overdose
     Route: 065
  20. PHENYLALANINE [Suspect]
     Active Substance: PHENYLALANINE
     Indication: Overdose
     Dosage: UNK
     Route: 065
  21. POTASSIUM CHLORIDE [Suspect]
     Active Substance: POTASSIUM CHLORIDE
     Indication: Overdose
     Dosage: UNK
     Route: 065
  22. PROLINE [Suspect]
     Active Substance: PROLINE
     Indication: Overdose
     Dosage: UNK
     Route: 065
  23. THREONINE [Suspect]
     Active Substance: THREONINE
     Indication: Overdose
     Dosage: UNK
     Route: 065
  24. VALINE [Suspect]
     Active Substance: VALINE
     Indication: Overdose
     Dosage: UNK
     Route: 065
  25. VASOPRESSIN [Suspect]
     Active Substance: VASOPRESSIN
     Indication: Overdose
     Route: 065
  26. VERAPAMIL HYDROCHLORIDE [Suspect]
     Active Substance: VERAPAMIL HYDROCHLORIDE
     Indication: Overdose
     Dosage: 19.2 G
     Route: 048
  27. VERAPAMIL HYDROCHLORIDE [Suspect]
     Active Substance: VERAPAMIL HYDROCHLORIDE
     Dosage: 19.2 G
     Route: 065
  28. XYLOCAINE WITH EPINEPHRINE [Suspect]
     Active Substance: EPINEPHRINE BITARTRATE\LIDOCAINE HYDROCHLORIDE
     Indication: Overdose
     Route: 065
  29. XYLOCAINE WITH EPINEPHRINE [Suspect]
     Active Substance: EPINEPHRINE BITARTRATE\LIDOCAINE HYDROCHLORIDE
     Route: 065
  30. EPINEPHRINE [Suspect]
     Active Substance: EPINEPHRINE
     Indication: Overdose
     Route: 065
  31. DEXTROSE [Suspect]
     Active Substance: DEXTROSE
     Indication: Overdose
     Route: 065
  32. MAGNESIUM CHLORIDE ANHYDROUS [Suspect]
     Active Substance: MAGNESIUM CHLORIDE ANHYDROUS
     Indication: Overdose
     Dosage: UNK
     Route: 065
  33. VERAPAMIL [Suspect]
     Active Substance: VERAPAMIL HYDROCHLORIDE
     Indication: Overdose
     Dosage: 19.2 G
     Route: 048
  34. DEXTROSE\SODIUM CHLORIDE [Suspect]
     Active Substance: DEXTROSE\SODIUM CHLORIDE
     Indication: Overdose
     Dosage: UNK
     Route: 065

REACTIONS (15)
  - Cardiac arrest [Recovered/Resolved]
  - Cardiogenic shock [Recovered/Resolved]
  - Coma scale abnormal [Recovered/Resolved]
  - Compartment syndrome [Recovered/Resolved]
  - Condition aggravated [Recovered/Resolved]
  - Hyperkalaemia [Recovered/Resolved]
  - Ileus [Recovered/Resolved]
  - Lactic acidosis [Recovered/Resolved]
  - Overdose [Recovered/Resolved]
  - Pulse absent [Recovered/Resolved]
  - Rhabdomyolysis [Recovered/Resolved]
  - Vasoplegia syndrome [Recovered/Resolved]
  - Bradycardia [Recovered/Resolved]
  - Hypotension [Recovered/Resolved]
  - Off label use [Recovered/Resolved]
